FAERS Safety Report 5429875-4 (Version None)
Quarter: 2007Q3

REPORT INFORMATION
  Report Type: 
  Country: None (occurrence: None)
  Receive Date: 20070829
  Receipt Date: 20070817
  Transmission Date: 20080115
  Serious: Yes (Other)
  Sender: FDA-Public Use
  Company Number: US-PFIZER INC-2007045340

PATIENT
  Sex: Female
  Weight: 61.2 kg

DRUGS (7)
  1. CHANTIX [Suspect]
     Indication: SMOKING CESSATION THERAPY
     Dates: start: 20070329, end: 20070401
  2. METHADONE HCL [Concomitant]
  3. SOMA [Concomitant]
  4. NORCO [Concomitant]
  5. ZESTRIL [Concomitant]
  6. LEVAQUIN [Concomitant]
  7. PREMPRO [Concomitant]

REACTIONS (9)
  - ABASIA [None]
  - ABNORMAL DREAMS [None]
  - BONE PAIN [None]
  - DYSGEUSIA [None]
  - MUSCULOSKELETAL PAIN [None]
  - NAUSEA [None]
  - NERVOUSNESS [None]
  - PAIN [None]
  - VOMITING [None]
